FAERS Safety Report 25503539 (Version 5)
Quarter: 2025Q3

REPORT INFORMATION
  Report Type: Spontaneous
  Country: US (occurrence: US)
  Receive Date: 20250702
  Receipt Date: 20250821
  Transmission Date: 20251021
  Serious: No
  Sender: ROCHE
  Company Number: US-ROCHE-10000318804

PATIENT
  Age: 18 Year
  Sex: Female
  Weight: 90.72 kg

DRUGS (19)
  1. XOLAIR PFS [Suspect]
     Active Substance: OMALIZUMAB
     Indication: Ehlers-Danlos syndrome
     Dosage: ADDITIONAL REGIMEN:?DOSE: 300 MG?DRUG STILL NOT ADMINISTERED?FREQUENCY IS 1 FOR 4 WEEK?300MG/2ML (ST
     Route: 058
     Dates: start: 202206
  2. XOLAIR PFS [Suspect]
     Active Substance: OMALIZUMAB
     Indication: Urticaria
  3. ZYRTEC [Concomitant]
     Active Substance: CETIRIZINE HYDROCHLORIDE
     Indication: Hypersensitivity
     Dosage: MORE DOSAGE INFORMATION AS NEEDED, UP TO 4 TIMES PER DAY
     Route: 048
  4. ZYRTEC [Concomitant]
     Active Substance: CETIRIZINE HYDROCHLORIDE
     Indication: Swelling
  5. ROBAXIN [Concomitant]
     Active Substance: METHOCARBAMOL
     Indication: Ehlers-Danlos syndrome
     Route: 048
  6. TOPROL XL [Concomitant]
     Active Substance: METOPROLOL SUCCINATE
     Indication: Migraine
     Dosage: AT BEDTIME
     Route: 048
  7. LAMICTAL [Concomitant]
     Active Substance: LAMOTRIGINE
     Indication: Bipolar disorder
     Route: 048
     Dates: start: 2024
  8. LAMICTAL [Concomitant]
     Active Substance: LAMOTRIGINE
     Route: 048
     Dates: end: 2024
  9. MELATONIN [Concomitant]
     Active Substance: MELATONIN
     Route: 048
  10. ATARAX [Concomitant]
     Active Substance: HYDROXYZINE HYDROCHLORIDE
     Indication: Pruritus
     Route: 048
  11. PEPCID [Concomitant]
     Active Substance: FAMOTIDINE
     Indication: Pruritus
     Route: 048
  12. PEPCID [Concomitant]
     Active Substance: FAMOTIDINE
     Indication: Swelling
  13. LEXAPRO [Concomitant]
     Active Substance: ESCITALOPRAM OXALATE
     Indication: Depression
     Route: 048
     Dates: start: 2023
  14. LEXAPRO [Concomitant]
     Active Substance: ESCITALOPRAM OXALATE
     Indication: Anxiety
  15. LEXAPRO [Concomitant]
     Active Substance: ESCITALOPRAM OXALATE
     Indication: Bipolar disorder
  16. EPIPEN [Concomitant]
     Active Substance: EPINEPHRINE
     Indication: Hypersensitivity
  17. ZOLOFT [Concomitant]
     Active Substance: SERTRALINE HYDROCHLORIDE
     Indication: Depression
     Dates: end: 2023
  18. ZOLOFT [Concomitant]
     Active Substance: SERTRALINE HYDROCHLORIDE
     Indication: Anxiety
  19. ZOLOFT [Concomitant]
     Active Substance: SERTRALINE HYDROCHLORIDE
     Indication: Bipolar disorder

REACTIONS (11)
  - Wrong technique in product usage process [Unknown]
  - Off label use [Unknown]
  - Pain [Recovered/Resolved]
  - Depression [Recovered/Resolved]
  - Anxiety [Recovered/Resolved]
  - Bipolar disorder [Recovered/Resolved]
  - Sleep terror [Recovered/Resolved]
  - Off label use [Unknown]
  - Rash [Unknown]
  - Peripheral swelling [Unknown]
  - Product leakage [Unknown]

NARRATIVE: CASE EVENT DATE: 20230101
